FAERS Safety Report 5907781-6 (Version None)
Quarter: 2008Q3

REPORT INFORMATION
  Report Type: 
  Country: None (occurrence: None)
  Receive Date: 20080929
  Receipt Date: 20080915
  Transmission Date: 20090109
  Serious: Yes (Hospitalization)
  Sender: FDA-Public Use
  Company Number: FABR-1000444

PATIENT
  Age: 54 Year
  Sex: Male

DRUGS (1)
  1. FABRAZYME [Suspect]
     Indication: FABRY'S DISEASE
     Dosage: 60 MG Q2W UNK
     Dates: start: 20030701

REACTIONS (2)
  - CARDIAC FAILURE CONGESTIVE [None]
  - HERNIA [None]
